FAERS Safety Report 6361783-7 (Version None)
Quarter: 2009Q3

REPORT INFORMATION
  Report Type: 
  Country: None (occurrence: None)
  Receive Date: 20090918
  Receipt Date: 20090908
  Transmission Date: 20100115
  Serious: Yes (Other)
  Sender: FDA-Public Use
  Company Number: US-PFIZER INC-2009267003

PATIENT

DRUGS (2)
  1. PREMPRO [Suspect]
     Indication: HORMONE REPLACEMENT THERAPY
     Dosage: 0.625/2.5MG UNK
     Dates: end: 20011001
  2. ALDACTONE [Concomitant]
     Dosage: UNK
     Dates: start: 19960101, end: 20030101

REACTIONS (1)
  - BREAST CANCER FEMALE [None]
